FAERS Safety Report 19608303 (Version 1)
Quarter: 2021Q3

REPORT INFORMATION
  Report Type: Report from Study
  Country: NL (occurrence: NL)
  Receive Date: 20210726
  Receipt Date: 20210726
  Transmission Date: 20211014
  Serious: Yes (Other)
  Sender: FDA-Public Use
  Company Number: NL-ELI_LILLY_AND_COMPANY-NL202107007336

PATIENT
  Age: 69 Year
  Sex: Female

DRUGS (1)
  1. PEMETREXED. [Suspect]
     Active Substance: PEMETREXED
     Indication: NON-SMALL CELL LUNG CANCER
     Dosage: 250 MG, CYCLICAL
     Route: 065

REACTIONS (4)
  - Rash [Unknown]
  - Malaise [Unknown]
  - Pancytopenia [Unknown]
  - Neutropenia [Unknown]
